FAERS Safety Report 10607383 (Version 1)
Quarter: 2014Q4

REPORT INFORMATION
  Report Type: Spontaneous
  Country: US (occurrence: None)
  Receive Date: 20141124
  Receipt Date: 20141124
  Transmission Date: 20150529
  Serious: Yes (Hospitalization)
  Sender: FDA-Public Use
  Company Number: None

PATIENT
  Age: 65 Year
  Sex: Female
  Weight: 91 kg

DRUGS (2)
  1. CYCLOPHOSPHAMIDE. [Suspect]
     Active Substance: CYCLOPHOSPHAMIDE
     Dates: end: 20110823
  2. TAXOTERE [Suspect]
     Active Substance: DOCETAXEL
     Dates: end: 20110823

REACTIONS (6)
  - Headache [None]
  - Diverticulum [None]
  - Refractory cytopenia with unilineage dysplasia [None]
  - Contusion [None]
  - Epistaxis [None]
  - Fatigue [None]

NARRATIVE: CASE EVENT DATE: 20140707
